FAERS Safety Report 14544824 (Version 2)
Quarter: 2018Q1

REPORT INFORMATION
  Report Type: Spontaneous
  Country: ES (occurrence: ES)
  Receive Date: 20180217
  Receipt Date: 20180317
  Transmission Date: 20180509
  Serious: Yes (Hospitalization, Other)
  Sender: FDA-Public Use
  Company Number: ES-AUROBINDO-AUR-APL-2018-007820

PATIENT
  Age: 84 Year
  Sex: Female

DRUGS (2)
  1. LEVOTHYROXINE SODIUM. [Concomitant]
     Active Substance: LEVOTHYROXINE SODIUM
     Indication: HYPERCHOLESTEROLAEMIA
     Dosage: 50 MICROGRAM, QD
     Route: 048
  2. SIMVASTATIN FILM-COATED TABLET [Suspect]
     Active Substance: SIMVASTATIN
     Indication: HYPERCHOLESTEROLAEMIA
     Dosage: 20 MG, QD
     Route: 048
     Dates: start: 20150215, end: 20150601

REACTIONS (1)
  - Immune-mediated necrotising myopathy [Recovering/Resolving]

NARRATIVE: CASE EVENT DATE: 20150215
